FAERS Safety Report 24100570 (Version 1)
Quarter: 2024Q3

REPORT INFORMATION
  Report Type: Report from Study
  Country: US (occurrence: None)
  Receive Date: 20240717
  Receipt Date: 20240717
  Transmission Date: 20241016
  Serious: Yes (Other)
  Sender: ASTRAZENECA
  Company Number: 2019SF45863

PATIENT
  Sex: Female

DRUGS (2)
  1. LYNPARZA [Suspect]
     Active Substance: OLAPARIB
     Indication: Breast cancer
     Route: 048
     Dates: start: 20190925
  2. ZOFRAN [Concomitant]
     Active Substance: ONDANSETRON HYDROCHLORIDE

REACTIONS (20)
  - Blood pressure increased [Recovering/Resolving]
  - Blood alkaline phosphatase increased [Recovering/Resolving]
  - Aspartate aminotransferase increased [Recovering/Resolving]
  - Supraventricular tachycardia [Unknown]
  - Alanine aminotransferase increased [Recovering/Resolving]
  - Taste disorder [Not Recovered/Not Resolved]
  - Cough [Unknown]
  - Asthenia [Unknown]
  - Dyspepsia [Unknown]
  - Fatigue [Unknown]
  - Nausea [Unknown]
  - Blepharitis [Unknown]
  - Eyelid injury [Recovering/Resolving]
  - Gastrooesophageal reflux disease [Unknown]
  - Pain [Unknown]
  - Nasopharyngitis [Unknown]
  - Myalgia [Unknown]
  - Arthralgia [Unknown]
  - Hepatic enzyme increased [Unknown]
  - Product dose omission issue [Unknown]
